FAERS Safety Report 19090115 (Version 1)
Quarter: 2021Q2

REPORT INFORMATION
  Report Type: Spontaneous
  Country: DE (occurrence: DE)
  Receive Date: 20210404
  Receipt Date: 20210404
  Transmission Date: 20210717
  Serious: Yes (Death, Other)
  Sender: FDA-Public Use
  Company Number: DE-TEVA-647174ACC

PATIENT
  Age: 78 Year
  Sex: Male

DRUGS (7)
  1. BENDAMUSTINE HYDROCHLORIDE. [Suspect]
     Active Substance: BENDAMUSTINE HYDROCHLORIDE
     Indication: B-CELL LYMPHOMA
     Dosage: 90 MG/M2, CYCLIC, 5 CYCLES (TOTAL DOSE (SINGLE), CONSOLIDATION TREATMENT)
     Route: 042
     Dates: start: 201112, end: 201504
  2. RIVAROXABAN [Concomitant]
     Active Substance: RIVAROXABAN
     Indication: PRODUCT USED FOR UNKNOWN INDICATION
     Route: 065
     Dates: start: 2014
  3. DIGITOXIN [Concomitant]
     Active Substance: DIGITOXIN
     Indication: PRODUCT USED FOR UNKNOWN INDICATION
     Route: 065
     Dates: start: 2008
  4. MABTHERA [Suspect]
     Active Substance: RITUXIMAB
     Dosage: UNK, TOTAL DOSE (SINGLE), CONSOLIDATION TREATMENT
     Route: 042
     Dates: start: 20150929, end: 20150929
  5. ZEVALIN [Suspect]
     Active Substance: IBRITUMOMAB TIUXETAN
     Indication: B-CELL LYMPHOMA
     Dosage: TOTAL DOSE, 0.4 MCI/KG (SINGLE), CONSOLIDATION TREATMENT
     Route: 042
     Dates: start: 20121213, end: 20121213
  6. MABTHERA [Suspect]
     Active Substance: RITUXIMAB
     Indication: B-CELL LYMPHOMA
     Dosage: UNK UNK, TOTAL DOSE (SINGLE), CONSOLIDATION TREATMENT
     Route: 042
     Dates: start: 2012, end: 2012
  7. MABTHERA [Suspect]
     Active Substance: RITUXIMAB
     Dosage: 5 CYCLES
     Route: 042
     Dates: start: 201112, end: 201404

REACTIONS (9)
  - Myelodysplastic syndrome [Fatal]
  - Leukopenia [Unknown]
  - Acute myeloid leukaemia [Fatal]
  - Neutropenia [Unknown]
  - Oral candidiasis [Unknown]
  - Thrombocytopenia [Unknown]
  - Thrombocytopenia [Unknown]
  - Pancytopenia [Unknown]
  - Oral candidiasis [Unknown]

NARRATIVE: CASE EVENT DATE: 20121213
